FAERS Safety Report 8343990-7 (Version None)
Quarter: 2012Q2

REPORT INFORMATION
  Report Type: 
  Country: None (occurrence: None)
  Receive Date: 20120504
  Receipt Date: 20120418
  Transmission Date: 20120825
  Serious: Yes (Other)
  Sender: FDA-Public Use
  Company Number: 2012P1011765

PATIENT
  Sex: Female

DRUGS (2)
  1. IBUPROFEN (ADVIL) [Concomitant]
  2. LUSTRA AF [Suspect]
     Indication: ACNE
     Dosage: TOP
     Route: 061
     Dates: start: 20020101, end: 20120331

REACTIONS (2)
  - PRODUCT CONTAINER ISSUE [None]
  - FACE INJURY [None]
